FAERS Safety Report 5736749-8 (Version None)
Quarter: 2008Q2

REPORT INFORMATION
  Report Type: 
  Country: None (occurrence: None)
  Receive Date: 20080513
  Receipt Date: 20080508
  Transmission Date: 20081010
  Serious: Yes (Hospitalization)
  Sender: FDA-Public Use
  Company Number: ES-BOEHRINGER INGELHEIM GMBH, GERMANY-2008-ES-00567ES

PATIENT
  Age: 83 Year
  Sex: Female

DRUGS (4)
  1. MOVALIS 7.5MG [Suspect]
     Indication: SCIATICA
     Route: 048
     Dates: start: 20070101, end: 20070429
  2. XICIL [Concomitant]
     Indication: BONE PAIN
  3. ACETAMINOPHEN [Concomitant]
     Indication: BONE PAIN
  4. AMERIDE [Concomitant]
     Indication: HYPERTENSION
     Dosage: 5/50 MG

REACTIONS (2)
  - METABOLIC ACIDOSIS [None]
  - RENAL FAILURE ACUTE [None]
